FAERS Safety Report 5631910-5 (Version None)
Quarter: 2008Q1

REPORT INFORMATION
  Report Type: 
  Country: None (occurrence: None)
  Receive Date: 20080220
  Receipt Date: 20080208
  Transmission Date: 20080703
  Serious: Yes (Other)
  Sender: FDA-Public Use
  Company Number: JP-AMGEN-US265417

PATIENT
  Sex: Female

DRUGS (1)
  1. ENBREL [Suspect]
     Indication: RHEUMATOID ARTHRITIS
     Dosage: UNKNOWN
     Route: 058

REACTIONS (4)
  - CARDIAC VALVE DISEASE [None]
  - FATIGUE [None]
  - PHARYNGOLARYNGEAL PAIN [None]
  - STOMATITIS [None]
